FAERS Safety Report 18856379 (Version 2)
Quarter: 2021Q1

REPORT INFORMATION
  Report Type: Spontaneous
  Country: JP (occurrence: JP)
  Receive Date: 20210207
  Receipt Date: 20210219
  Transmission Date: 20210420
  Serious: No
  Sender: FDA-Public Use
  Company Number: JP-LUPIN PHARMACEUTICALS INC.-2021-01239

PATIENT
  Age: 8 Year
  Sex: Male

DRUGS (5)
  1. METHYLPREDNISOLONE. [Suspect]
     Active Substance: METHYLPREDNISOLONE
     Dosage: UNK (ADMINISTERED AT MONTHLY PACE)
     Route: 065
  2. SULTIAME [Concomitant]
     Active Substance: SULTHIAME
     Indication: PETIT MAL EPILEPSY
     Dosage: UNK
     Route: 048
  3. METHYLPREDNISOLONE. [Suspect]
     Active Substance: METHYLPREDNISOLONE
     Indication: ACQUIRED EPILEPTIC APHASIA
     Dosage: 30 MILLIGRAM/KILOGRAM, QD (ADMINISTERED AS PULSE THERAPY)
     Route: 042
  4. VALPROATE [Concomitant]
     Active Substance: VALPROIC ACID
     Indication: PETIT MAL EPILEPSY
     Dosage: UNK
     Route: 065
  5. ZONISAMIDE. [Concomitant]
     Active Substance: ZONISAMIDE
     Indication: PETIT MAL EPILEPSY
     Dosage: UNK
     Route: 065

REACTIONS (1)
  - Off label use [Unknown]
